FAERS Safety Report 7653821-6 (Version None)
Quarter: 2011Q3

REPORT INFORMATION
  Report Type: 
  Country: None (occurrence: None)
  Receive Date: 20110803
  Receipt Date: 20110731
  Transmission Date: 20111222
  Serious: Yes (Other)
  Sender: FDA-Public Use
  Company Number: US-PFIZER INC-2011012304

PATIENT
  Sex: Female
  Weight: 112.2 kg

DRUGS (3)
  1. LYRICA [Suspect]
     Indication: FIBROMYALGIA
     Dosage: 150 MG, 2X/DAY
     Route: 048
     Dates: start: 20090101, end: 20110101
  2. LYRICA [Suspect]
     Dosage: UNK
     Route: 048
     Dates: start: 20110114
  3. CYMBALTA [Concomitant]
     Indication: DEPRESSION

REACTIONS (4)
  - WITHDRAWAL SYNDROME [None]
  - PALPITATIONS [None]
  - MOBILITY DECREASED [None]
  - PANIC ATTACK [None]
